FAERS Safety Report 6688218-9 (Version None)
Quarter: 2010Q2

REPORT INFORMATION
  Report Type: 
  Country: None (occurrence: None)
  Receive Date: 20100420
  Receipt Date: 20100414
  Transmission Date: 20101027
  Serious: Yes (Hospitalization)
  Sender: FDA-Public Use
  Company Number: GB-TEVA-231173ISR

PATIENT
  Age: 28 Year
  Sex: Female

DRUGS (1)
  1. LAMOTRIGINE [Suspect]
     Indication: DEPRESSED MOOD
     Route: 048
     Dates: start: 20100301, end: 20100323

REACTIONS (4)
  - LYMPHADENOPATHY [None]
  - PANCYTOPENIA [None]
  - PYREXIA [None]
  - SPLENOMEGALY [None]
